FAERS Safety Report 12809842 (Version 1)
Quarter: 2016Q4

REPORT INFORMATION
  Report Type: Spontaneous
  Country: US (occurrence: US)
  Receive Date: 20161005
  Receipt Date: 20161005
  Transmission Date: 20170207
  Serious: No
  Sender: FDA-Public Use
  Company Number: US-ADAREPHARM-2016-US-000038

PATIENT
  Sex: Male

DRUGS (15)
  1. KCL [Suspect]
     Active Substance: POTASSIUM CHLORIDE
     Dosage: 1 TABLET BY MOUTH 2X A DAY
     Route: 048
     Dates: end: 20140804
  2. JANUVIA [Concomitant]
     Active Substance: SITAGLIPTIN PHOSPHATE
     Dosage: TAKE 50 MG BY MOUTH ONCE A DAY
     Route: 048
     Dates: end: 20150202
  3. ZOCOR [Concomitant]
     Active Substance: SIMVASTATIN
     Dosage: TAKE 20 MG BY MOUTH NIGHTLY
     Route: 048
     Dates: end: 20150118
  4. SENNOSIDES-DOCUSATE SODIUM (STOOL SOFTENER + LAXATIVE PO) [Concomitant]
     Route: 048
  5. PRILOSEC [Concomitant]
     Active Substance: OMEPRAZOLE MAGNESIUM
     Dosage: TAKE BY MOUTH 2X A DAY
     Route: 048
     Dates: end: 20141030
  6. HYDRODIURIL [Concomitant]
     Active Substance: HYDROCHLOROTHIAZIDE
     Dosage: 1 TABLET BY MOUTH
     Route: 048
     Dates: start: 20140716
  7. OMEGA 3 1000 MG CAPS [Concomitant]
     Dosage: TAKE 1 TABLET BY MOUTH 2X/DAY
     Route: 048
  8. LASIX [Concomitant]
     Active Substance: FUROSEMIDE
     Dosage: TAKE BY MOUTH 2X A DAY
     Route: 048
     Dates: end: 20140716
  9. ASCORBIC ACID. [Concomitant]
     Active Substance: ASCORBIC ACID
     Route: 049
     Dates: start: 20140423
  10. MULTIPLE VITAMINS-MINERALS [Concomitant]
     Route: 048
  11. COREG [Concomitant]
     Active Substance: CARVEDILOL
     Dosage: 12.5 MG BY MOUTH DAILY
     Route: 048
  12. CYANOCOBALAMIN (VITAMIN B-12) 1000 MCG TABLET [Concomitant]
     Dosage: 1000 MCG BY MOUTH ONCE A DAY
     Route: 048
  13. ASPIRIN 81 MG TABLET [Concomitant]
     Dosage: TAKE 1 TABLET BY MOUTH
     Route: 048
     Dates: end: 20151022
  14. ASTELIN [Concomitant]
     Active Substance: AZELASTINE HYDROCHLORIDE
     Indication: SEASONAL ALLERGY
     Dosage: 2 SPRAYS INTO EACH NOSTRIL
     Route: 045
     Dates: start: 20140414, end: 20150113
  15. MAGNESIUM HYDROXIDE (MILK OF MAGNESIA) 800 MG/5ML SUSPENSION [Concomitant]
     Indication: CONSTIPATION
     Dosage: 800 MG/5ML

REACTIONS (1)
  - Hyperkalaemia [Unknown]
